FAERS Safety Report 21993783 (Version 3)
Quarter: 2024Q2

REPORT INFORMATION
  Report Type: Spontaneous
  Country: GB (occurrence: GB)
  Receive Date: 20230215
  Receipt Date: 20240405
  Transmission Date: 20240716
  Serious: Yes (Hospitalization, Other)
  Sender: FDA-Public Use
  Company Number: GB-ALLERGAN-2304025US

PATIENT
  Age: 53 Year
  Sex: Male

DRUGS (3)
  1. ACITRETIN [Suspect]
     Active Substance: ACITRETIN
     Indication: Psoriasis
     Dosage: 2ND COURSE FOR 3 WEEKS
     Route: 048
  2. ACITRETIN [Suspect]
     Active Substance: ACITRETIN
     Indication: Psoriasis
     Route: 048
  3. METHOTREXATE [Concomitant]
     Active Substance: METHOTREXATE
     Indication: Psoriasis
     Route: 048

REACTIONS (4)
  - Cutaneous vasculitis [Recovering/Resolving]
  - Vasculitis gastrointestinal [Recovering/Resolving]
  - Rosacea [Recovering/Resolving]
  - Gastrointestinal disorder [Recovering/Resolving]
